FAERS Safety Report 5489925-6 (Version None)
Quarter: 2007Q4

REPORT INFORMATION
  Report Type: 
  Country: None (occurrence: None)
  Receive Date: 20071018
  Receipt Date: 20071016
  Transmission Date: 20080405
  Serious: Yes (Life-Threatening, Hospitalization)
  Sender: FDA-Public Use
  Company Number: ES-SHR-ES-2006-026690

PATIENT
  Sex: Female
  Weight: 120 kg

DRUGS (1)
  1. ULTRAVIST / CLAROGRAF 300 [Suspect]
     Dosage: 300 MG, 1 DOSE
     Route: 042
     Dates: start: 20060524, end: 20060524

REACTIONS (1)
  - ANAPHYLACTIC SHOCK [None]
